FAERS Safety Report 20560501 (Version 1)
Quarter: 2022Q1

REPORT INFORMATION
  Report Type: Report from Study
  Country: CO (occurrence: None)
  Receive Date: 20220307
  Receipt Date: 20220307
  Transmission Date: 20220423
  Serious: Yes (Hospitalization, Other)
  Sender: FDA-Public Use
  Company Number: 2022A087169

PATIENT
  Age: 29640 Day
  Sex: Male
  Weight: 70 kg

DRUGS (3)
  1. BRILINTA [Suspect]
     Active Substance: TICAGRELOR
     Indication: Thrombosis
     Route: 048
     Dates: start: 20210228
  2. BRILINTA [Suspect]
     Active Substance: TICAGRELOR
     Indication: Thrombosis
     Route: 048
     Dates: start: 20191114
  3. BRILINTA [Suspect]
     Active Substance: TICAGRELOR
     Indication: Thrombosis
     Route: 048
     Dates: start: 20201001

REACTIONS (1)
  - Pulmonary thrombosis [Recovered/Resolved]

NARRATIVE: CASE EVENT DATE: 20220120
